FAERS Safety Report 11719521 (Version 1)
Quarter: 2015Q4

REPORT INFORMATION
  Report Type: Spontaneous
  Country: US (occurrence: US)
  Receive Date: 20151110
  Receipt Date: 20151110
  Transmission Date: 20160304
  Serious: No
  Sender: FDA-Public Use
  Company Number: US-CTI_01744_2015

PATIENT
  Age: 15 Month
  Sex: Female

DRUGS (11)
  1. BETHKIS [Suspect]
     Active Substance: TOBRAMYCIN
     Indication: PSEUDOMONAS INFECTION
     Dosage: 300 MG/ 4 ML, BID; 28 DAYS ON ALTERNATING MONTHS
     Dates: start: 20150211, end: 20150527
  2. SALT [Concomitant]
     Active Substance: SODIUM CHLORIDE
     Dosage: 1/8 TSP DAILY, MIXED THROUGHOUT ALL BOTTLES IN THE DAY
  3. PULMOZYME [Concomitant]
     Active Substance: DORNASE ALFA
     Dosage: 1 MG/ML
     Route: 055
  4. PEPCID [Concomitant]
     Active Substance: FAMOTIDINE
     Dosage: 40 MG/ 5 ML; 3.2 MG
     Route: 048
  5. CREON [Concomitant]
     Active Substance: PANCRELIPASE AMYLASE\PANCRELIPASE LIPASE\PANCRELIPASE PROTEASE
     Dosage: 30,000-6,000-19,000; BEFORE EACH BOTTLE
  6. BETHKIS [Suspect]
     Active Substance: TOBRAMYCIN
     Indication: CYSTIC FIBROSIS
     Dosage: 300 MG/ 4 ML, BID; 28 DAYS ON ALTERNATING MONTHS
     Dates: start: 20150211, end: 20150527
  7. PREVACID [Concomitant]
     Active Substance: LANSOPRAZOLE
     Dosage: DAILY
     Route: 048
  8. POLYETHYLENE GLYCOL 3350. [Concomitant]
     Active Substance: POLYETHYLENE GLYCOL 3350
     Indication: CONSTIPATION
     Dosage: DAILY, AS NEEDED
     Route: 048
  9. ALBUTEROL SULFATE. [Concomitant]
     Active Substance: ALBUTEROL SULFATE
     Indication: WHEEZING
     Dosage: 2.5 MG/ 3 ML (0.083%)
     Route: 055
  10. ALBUTEROL SULFATE. [Concomitant]
     Active Substance: ALBUTEROL SULFATE
     Indication: COUGH
     Dosage: 90 MCG/ ACTUATION AEROSOL INHALER; AS NEEDED
     Route: 055
  11. MVW COMPLETE DROPS [Concomitant]
     Dosage: DAILY
     Route: 048

REACTIONS (3)
  - Bronchospasm [Recovered/Resolved]
  - Cough [Recovered/Resolved]
  - Product use issue [Recovered/Resolved]

NARRATIVE: CASE EVENT DATE: 2015
